FAERS Safety Report 7721859-6 (Version None)
Quarter: 2011Q3

REPORT INFORMATION
  Report Type: 
  Country: None (occurrence: None)
  Receive Date: 20110831
  Receipt Date: 20110819
  Transmission Date: 20111222
  Serious: Yes (Hospitalization)
  Sender: FDA-Public Use
  Company Number: CA-GENENTECH-319969

PATIENT
  Sex: Female

DRUGS (1)
  1. XOLAIR [Suspect]
     Indication: ASTHMA
     Dosage: 300 MG, 1/MONTH
     Route: 058
     Dates: start: 20061011

REACTIONS (4)
  - ABDOMINAL DISCOMFORT [None]
  - DIVERTICULITIS [None]
  - GASTROENTERITIS VIRAL [None]
  - ARTHRITIS [None]
